FAERS Safety Report 4585622-X (Version None)
Quarter: 2005Q1

REPORT INFORMATION
  Report Type: 
  Country: None (occurrence: None)
  Receive Date: 20050217
  Receipt Date: 20050211
  Transmission Date: 20050727
  Serious: Yes (Other)
  Sender: FDA-Public Use
  Company Number: AT-JNJFOC-20050202869

PATIENT
  Age: 75 Year
  Sex: Female

DRUGS (1)
  1. DURAGESIC [Suspect]
     Indication: INTERVERTEBRAL DISC DISORDER
     Route: 062

REACTIONS (2)
  - CEREBROVASCULAR ACCIDENT [None]
  - DRUG INEFFECTIVE [None]
